FAERS Safety Report 10117323 (Version 1)
Quarter: 2014Q2

REPORT INFORMATION
  Report Type: Spontaneous
  Country: US (occurrence: US)
  Receive Date: 20140425
  Receipt Date: 20140425
  Transmission Date: 20141212
  Serious: Yes (Other)
  Sender: FDA-Public Use
  Company Number: US-GILEAD-2012-0064981

PATIENT
  Sex: Female
  Weight: 86 kg

DRUGS (4)
  1. ATRIPLA [Suspect]
     Indication: HIV INFECTION
     Dosage: UNK
     Dates: start: 201109
  2. REYATAZ [Suspect]
     Dosage: UNK
     Dates: start: 201111
  3. TRUVADA [Concomitant]
  4. NORVIR [Concomitant]
     Indication: HIV INFECTION

REACTIONS (6)
  - Pneumonia [Unknown]
  - Urticaria [Unknown]
  - Gait disturbance [Unknown]
  - Unevaluable event [Unknown]
  - Unevaluable event [Unknown]
  - Dyspnoea [Unknown]
